FAERS Safety Report 5728294-0 (Version None)
Quarter: 2008Q2

REPORT INFORMATION
  Report Type: 
  Country: None (occurrence: None)
  Receive Date: 20080502
  Receipt Date: 20080502
  Transmission Date: 20081010
  Serious: Yes (Hospitalization)
  Sender: FDA-Public Use
  Company Number: None

PATIENT
  Age: 32 Year
  Sex: Male
  Weight: 66.2 kg

DRUGS (1)
  1. CLOFARABINE GENZYME [Suspect]
     Indication: ACUTE MYELOID LEUKAEMIA
     Dosage: 35.2 DAYS 1-5; DAILY IV
     Route: 042
     Dates: start: 20080423, end: 20080427

REACTIONS (5)
  - BLOOD CULTURE POSITIVE [None]
  - BLOOD PRESSURE SYSTOLIC INCREASED [None]
  - CATHETER SITE ERYTHEMA [None]
  - CATHETER SITE PRURITUS [None]
  - NEUTROPENIA [None]
